FAERS Safety Report 7677084-0 (Version None)
Quarter: 2011Q3

REPORT INFORMATION
  Report Type: 
  Country: None (occurrence: None)
  Receive Date: 20110811
  Receipt Date: 20110804
  Transmission Date: 20111222
  Serious: Yes (Other)
  Sender: FDA-Public Use
  Company Number: VE-ROCHE-794987

PATIENT
  Sex: Female
  Weight: 75 kg

DRUGS (3)
  1. XELODA [Suspect]
     Indication: BREAST CANCER
     Route: 048
     Dates: start: 20110228
  2. RECORMON [Suspect]
     Route: 065
     Dates: start: 20110228
  3. AVASTIN [Suspect]
     Indication: BREAST CANCER
     Dosage: FREQUENCY CYCLIC
     Route: 042
     Dates: start: 20110228

REACTIONS (5)
  - VOMITING [None]
  - APPETITE DISORDER [None]
  - PALMAR-PLANTAR ERYTHRODYSAESTHESIA SYNDROME [None]
  - SKIN HYPERPIGMENTATION [None]
  - NAIL DISORDER [None]
